FAERS Safety Report 9458238 (Version 1)
Quarter: 2013Q3

REPORT INFORMATION
  Report Type: Spontaneous
  Country: US (occurrence: None)
  Receive Date: 20130813
  Receipt Date: 20130813
  Transmission Date: 20140515
  Serious: No
  Sender: FDA-Public Use
  Company Number: None

PATIENT
  Age: 68 Year
  Sex: Male
  Weight: 70.31 kg

DRUGS (1)
  1. HYDROCODONE POLISTIREX AND CHLOR [Suspect]
     Dosage: 5 ML TWICE DAILY TAKEN BY MOUTH
     Route: 048
     Dates: start: 20130805, end: 20130808

REACTIONS (2)
  - Drug ineffective [None]
  - Product substitution issue [None]
